FAERS Safety Report 6530653-3 (Version None)
Quarter: 2010Q1

REPORT INFORMATION
  Report Type: 
  Country: None (occurrence: None)
  Receive Date: 20100108
  Receipt Date: 20091117
  Transmission Date: 20100710
  Serious: Yes (Death, Hospitalization, Other)
  Sender: FDA-Public Use
  Company Number: US-ELI_LILLY_AND_COMPANY-US200911004374

PATIENT
  Sex: Female

DRUGS (2)
  1. BYETTA [Suspect]
     Dosage: UNK, UNKNOWN
     Route: 065
     Dates: start: 20090701
  2. JANUVIA [Concomitant]
     Dosage: UNK, UNKNOWN
     Route: 065

REACTIONS (3)
  - CARDIAC DISORDER [None]
  - DEATH [None]
  - PANCREATITIS ACUTE [None]
